FAERS Safety Report 9289004 (Version 1)
Quarter: 2013Q2

REPORT INFORMATION
  Report Type: Spontaneous
  Country: US (occurrence: US)
  Receive Date: 20130514
  Receipt Date: 20130514
  Transmission Date: 20140414
  Serious: No
  Sender: FDA-Public Use
  Company Number: US-OPTIMER PHARMACEUTICALS, INC.-20120025

PATIENT
  Sex: 0

DRUGS (7)
  1. DIFICID [Suspect]
     Indication: CLOSTRIDIAL INFECTION
     Dosage: 200 MG, BID
     Route: 048
     Dates: start: 20120201, end: 20120210
  2. DIFICID [Suspect]
     Dosage: 200 MG, BID
     Route: 048
     Dates: start: 20120229
  3. FLAGYL [Concomitant]
     Indication: DIARRHOEA
     Dosage: UNK
     Route: 042
     Dates: start: 201201, end: 201201
  4. ASPIRIN [Concomitant]
  5. CALCIUM [Concomitant]
  6. LOSARTAN [Concomitant]
  7. WELCHOL [Concomitant]
     Indication: DIARRHOEA

REACTIONS (3)
  - Clostridium difficile infection [Unknown]
  - Disease recurrence [Unknown]
  - Diarrhoea [Unknown]
